FAERS Safety Report 9227879 (Version 1)
Quarter: 2013Q2

REPORT INFORMATION
  Report Type: Spontaneous
  Country: US (occurrence: None)
  Receive Date: 20130411
  Receipt Date: 20130411
  Transmission Date: 20140414
  Serious: Yes (Other)
  Sender: FDA-Public Use
  Company Number: None

PATIENT
  Age: 55 Year
  Sex: Female
  Weight: 102.06 kg

DRUGS (1)
  1. CYMBALTA 20 MG LILLY [Suspect]
     Indication: MUSCULOSKELETAL PAIN
     Dosage: 20 MG EVERYDAY PO
     Route: 048
     Dates: start: 20120306, end: 20120420

REACTIONS (9)
  - Insomnia [None]
  - Abdominal pain upper [None]
  - Helicobacter test positive [None]
  - Tremor [None]
  - Palpitations [None]
  - Agitation [None]
  - White blood cell count increased [None]
  - Weight decreased [None]
  - Colitis microscopic [None]
